FAERS Safety Report 14123719 (Version 4)
Quarter: 2017Q4

REPORT INFORMATION
  Report Type: Spontaneous
  Country: US (occurrence: US)
  Receive Date: 20171025
  Receipt Date: 20171215
  Transmission Date: 20180321
  Serious: Yes (Hospitalization)
  Sender: FDA-Public Use
  Company Number: US-VIFOR (INTERNATIONAL) INC.-VIT-2017-10502

PATIENT
  Age: 69 Year
  Sex: Male
  Weight: 153.91 kg

DRUGS (12)
  1. COUMADIN [Concomitant]
     Active Substance: WARFARIN SODIUM
  2. CYMBALTA [Concomitant]
     Active Substance: DULOXETINE HYDROCHLORIDE
  3. SENSIPAR [Concomitant]
     Active Substance: CINACALCET HYDROCHLORIDE
  4. ZEMPLAR [Concomitant]
     Active Substance: PARICALCITOL
  5. ACETYLSALICYLIC ACID [Concomitant]
     Active Substance: ASPIRIN
  6. FOLIC ACID. [Concomitant]
     Active Substance: FOLIC ACID
  7. VELTASSA [Suspect]
     Active Substance: PATIROMER
     Indication: HYPERKALAEMIA
     Route: 048
     Dates: start: 20160812
  8. REQUIP [Concomitant]
     Active Substance: ROPINIROLE HYDROCHLORIDE
  9. EMLA [Concomitant]
     Active Substance: LIDOCAINE\PRILOCAINE
  10. MIRALAX [Concomitant]
     Active Substance: POLYETHYLENE GLYCOL 3350
  11. NOVOLOG [Concomitant]
     Active Substance: INSULIN ASPART
  12. RENVELA [Concomitant]
     Active Substance: SEVELAMER CARBONATE

REACTIONS (6)
  - Loss of consciousness [Recovered/Resolved]
  - Blood pressure decreased [Recovered/Resolved]
  - Arthralgia [Recovered/Resolved]
  - Wound [Recovered/Resolved]
  - Fall [Recovered/Resolved]
  - Contusion [Recovered/Resolved]

NARRATIVE: CASE EVENT DATE: 201710
